FAERS Safety Report 10371028 (Version 5)
Quarter: 2015Q2

REPORT INFORMATION
  Report Type: Report from Study
  Country: CA (occurrence: CA)
  Receive Date: 20140808
  Receipt Date: 20150611
  Transmission Date: 20150821
  Serious: Yes (Hospitalization, Other)
  Sender: FDA-Public Use
  Company Number: CA-ABBVIE-14K-028-1268141-00

PATIENT
  Age: 51 Year
  Sex: Male
  Weight: 97.7 kg

DRUGS (1)
  1. HUMIRA [Suspect]
     Active Substance: ADALIMUMAB
     Indication: CROHN^S DISEASE
     Route: 058
     Dates: start: 20120613, end: 20140723

REACTIONS (9)
  - Infection [Not Recovered/Not Resolved]
  - Arthritis [Not Recovered/Not Resolved]
  - Intestinal dilatation [Unknown]
  - Crohn^s disease [Recovered/Resolved]
  - Gastrointestinal inflammation [Recovering/Resolving]
  - Abdominal abscess [Recovered/Resolved]
  - Gastric fistula [Recovering/Resolving]
  - Enterocutaneous fistula [Unknown]
  - Small intestine adenocarcinoma [Not Recovered/Not Resolved]

NARRATIVE: CASE EVENT DATE: 20150121
